FAERS Safety Report 11379469 (Version 1)
Quarter: 2015Q3

REPORT INFORMATION
  Report Type: Report from Study
  Country: IT (occurrence: IT)
  Receive Date: 20150814
  Receipt Date: 20150814
  Transmission Date: 20151125
  Serious: Yes (Other)
  Sender: FDA-Public Use
  Company Number: IT-ROCHE-1620330

PATIENT

DRUGS (8)
  1. LEUCOVORIN. [Suspect]
     Active Substance: LEUCOVORIN
     Indication: COLORECTAL CANCER METASTATIC
     Dosage: IN 22-H CONTINUOUS INFUSION AT DAY 1.
     Route: 042
  2. BEVACIZUMAB [Suspect]
     Active Substance: BEVACIZUMAB
     Indication: COLORECTAL CANCER METASTATIC
     Route: 042
  3. 5-FU [Suspect]
     Active Substance: FLUOROURACIL
     Indication: COLORECTAL CANCER METASTATIC
     Dosage: IN 22-H CONTINUOUS INFUSION AT DAY 1.
     Route: 040
  4. IRINOTECAN [Suspect]
     Active Substance: IRINOTECAN
     Indication: COLORECTAL CANCER METASTATIC
     Route: 042
  5. LEUCOVORIN. [Suspect]
     Active Substance: LEUCOVORIN
     Dosage: IN 22-H CONTINUOUS INFUSION AT DAY 2.
     Route: 042
  6. 5-FU [Suspect]
     Active Substance: FLUOROURACIL
     Dosage: IN 22-H CONTINUOUS INFUSION AT DAY 1.
     Route: 042
  7. 5-FU [Suspect]
     Active Substance: FLUOROURACIL
     Dosage: IN 22-H CONTINUOUS INFUSION AT DAY 2.
     Route: 042
  8. 5-FU [Suspect]
     Active Substance: FLUOROURACIL
     Dosage: IN 22-H CONTINUOUS INFUSION AT DAY 1.
     Route: 040

REACTIONS (2)
  - Hyperbilirubinaemia [Unknown]
  - Transaminases increased [Unknown]
